FAERS Safety Report 24556100 (Version 5)
Quarter: 2025Q4

REPORT INFORMATION
  Report Type: Spontaneous
  Country: US (occurrence: US)
  Receive Date: 20241028
  Receipt Date: 20251203
  Transmission Date: 20260117
  Serious: No
  Sender: TRAVERE THERAPEUTICS
  Company Number: US-TRAVERE-2024TVT01002

PATIENT
  Age: 41 Year
  Sex: Female

DRUGS (4)
  1. FILSPARI [Suspect]
     Active Substance: SPARSENTAN
     Indication: IgA nephropathy
     Dosage: 200 MG 2 TABLETS DAILY
     Route: 048
     Dates: start: 20240920
  2. FILSPARI [Suspect]
     Active Substance: SPARSENTAN
     Dosage: 200 MG 1 TABLET DAILY
     Route: 048
  3. FILSPARI [Suspect]
     Active Substance: SPARSENTAN
     Route: 048
     Dates: start: 20251015
  4. FILSPARI [Suspect]
     Active Substance: SPARSENTAN
     Route: 048

REACTIONS (9)
  - Dark circles under eyes [Recovering/Resolving]
  - Periorbital swelling [Unknown]
  - Eye swelling [Unknown]
  - Hypotension [Recovered/Resolved]
  - Fatigue [Recovered/Resolved]
  - Chest pain [Recovering/Resolving]
  - Abdominal pain lower [Recovering/Resolving]
  - Dizziness [Recovered/Resolved]
  - Off label use [Recovered/Resolved]
